FAERS Safety Report 19337019 (Version 1)
Quarter: 2021Q2

REPORT INFORMATION
  Report Type: Spontaneous
  Country: US (occurrence: US)
  Receive Date: 20210530
  Receipt Date: 20210530
  Transmission Date: 20210717
  Serious: No
  Sender: FDA-Public Use
  Company Number: US-JNJFOC-20210534467

PATIENT
  Age: 71 Year
  Sex: Female
  Weight: 106.14 kg

DRUGS (8)
  1. PREDNISONE. [Concomitant]
     Active Substance: PREDNISONE
     Indication: RASH PRURITIC
     Dosage: 2 IN THE MORNING FOR 7 DAYS AND THEN 1 IN THE MORNING FOR 7 DAYS
     Route: 065
     Dates: start: 2021
  2. TRIAMCINOLONE [Concomitant]
     Active Substance: TRIAMCINOLONE
     Indication: RASH PRURITIC
     Route: 065
     Dates: start: 2021
  3. COVID?19 VACCINE NOS. [Concomitant]
     Active Substance: COVID-19 VACCINE NOS
     Dosage: SECOND DOSE, LEFT ARM
     Route: 065
     Dates: start: 20210226
  4. PEPCID AC [Suspect]
     Active Substance: FAMOTIDINE
     Indication: RASH PRURITIC
     Route: 065
     Dates: start: 2021
  5. COVID?19 VACCINE NOS. [Concomitant]
     Active Substance: COVID-19 VACCINE NOS
     Indication: IMMUNISATION
     Dosage: FIRST DOSE, LEFT ARM
     Route: 065
     Dates: start: 20210129
  6. CORTISONE [Concomitant]
     Active Substance: CORTISONE
     Indication: RASH PRURITIC
     Route: 065
     Dates: start: 2021
  7. DIPHENHYDRAMINE. [Concomitant]
     Active Substance: DIPHENHYDRAMINE
     Indication: RASH PRURITIC
     Route: 065
     Dates: start: 2021
  8. ZYRTEC [Concomitant]
     Active Substance: CETIRIZINE HYDROCHLORIDE
     Indication: RASH PRURITIC
     Route: 065
     Dates: start: 2021

REACTIONS (3)
  - Off label use [Unknown]
  - Rash [Not Recovered/Not Resolved]
  - Product use in unapproved indication [Unknown]

NARRATIVE: CASE EVENT DATE: 2021
